FAERS Safety Report 13082643 (Version 1)
Quarter: 2017Q1

REPORT INFORMATION
  Report Type: Spontaneous
  Country: US (occurrence: US)
  Receive Date: 20170103
  Receipt Date: 20170103
  Transmission Date: 20170428
  Serious: No
  Sender: FDA-Public Use
  Company Number: US-CMP PHARMA-2016CMP00044

PATIENT
  Sex: Male

DRUGS (1)
  1. SPS [Suspect]
     Active Substance: SODIUM POLYSTYRENE SULFONATE

REACTIONS (2)
  - Drug ineffective [Unknown]
  - Infrequent bowel movements [Unknown]
